FAERS Safety Report 10024806 (Version 2)
Quarter: 2014Q2

REPORT INFORMATION
  Report Type: Spontaneous
  Country: US (occurrence: US)
  Receive Date: 20140320
  Receipt Date: 20140425
  Transmission Date: 20141212
  Serious: Yes (Hospitalization, Other)
  Sender: FDA-Public Use
  Company Number: US-BAYER-2014-041664

PATIENT
  Age: 23 Year
  Sex: Female
  Weight: 104.31 kg

DRUGS (7)
  1. MIRENA [Suspect]
     Indication: CONTRACEPTION
     Dosage: 20 MCG/24HR, CONT
     Route: 015
     Dates: start: 20100902, end: 20130116
  2. WELLBUTRIN [Concomitant]
     Indication: DEPRESSION
  3. BUPROBAN [Concomitant]
  4. TRAZODONE [Concomitant]
     Indication: DEPRESSION
     Dosage: UNK
     Dates: start: 201109, end: 2013
  5. BUPROPION [Concomitant]
     Indication: DEPRESSION
     Dosage: 150 MG, DAILY
     Dates: start: 201101, end: 2013
  6. PERCOCET [Concomitant]
  7. LEVORA [Concomitant]

REACTIONS (7)
  - Uterine perforation [None]
  - Genital haemorrhage [None]
  - Injury [None]
  - Pain [None]
  - Emotional distress [None]
  - Device dislocation [None]
  - Device issue [None]
